FAERS Safety Report 12186253 (Version 3)
Quarter: 2016Q2

REPORT INFORMATION
  Report Type: Report from Study
  Country: US (occurrence: US)
  Receive Date: 20160317
  Receipt Date: 20160426
  Transmission Date: 20160815
  Serious: No
  Sender: FDA-Public Use
  Company Number: US-AMGEN-USASL2016031633

PATIENT
  Age: 18 Year
  Sex: Female

DRUGS (1)
  1. ENBREL [Suspect]
     Active Substance: ETANERCEPT
     Indication: JUVENILE IDIOPATHIC ARTHRITIS
     Dosage: 50 MG, QWK
     Route: 065
     Dates: start: 20150807

REACTIONS (7)
  - Stress [Unknown]
  - Pain in extremity [Unknown]
  - Pharyngeal disorder [Recovered/Resolved]
  - Aphonia [Recovered/Resolved]
  - Malaise [Recovered/Resolved]
  - Peripheral swelling [Unknown]
  - Decreased immune responsiveness [Unknown]

NARRATIVE: CASE EVENT DATE: 201603
